FAERS Safety Report 6668870-4 (Version None)
Quarter: 2010Q2

REPORT INFORMATION
  Report Type: 
  Country: None (occurrence: None)
  Receive Date: 20100406
  Receipt Date: 20100330
  Transmission Date: 20101027
  Serious: Yes (Hospitalization)
  Sender: FDA-Public Use
  Company Number: US-ROCHE-670610

PATIENT
  Sex: Female
  Weight: 218 kg

DRUGS (10)
  1. TOCILIZUMAB [Suspect]
     Indication: RHEUMATOID ARTHRITIS
     Dosage: DOSAGE FORM REPORTED: 100 ML.  DATE OF LAST DOSE PRIOR TO SAE: 08 DEC 2009
     Route: 042
     Dates: start: 20070109
  2. BLINDED TOCILIZUMAB [Suspect]
     Indication: RHEUMATOID ARTHRITIS
     Dosage: PATIENT PREVIOUSLY IN A DOUBLE-BLINDED MRA CORE STUDY, AND WAS UNBLINDED TO TOCILIZUMAB.
     Route: 042
  3. METHOTREXATE [Concomitant]
     Dates: start: 20081016
  4. FOLIC ACID [Concomitant]
     Dates: start: 19991003
  5. PREDNISONE TAB [Concomitant]
     Dates: start: 20091010
  6. OMEPRAZOLE [Concomitant]
     Dates: start: 20080401
  7. NORCO [Concomitant]
     Dosage: DRUG NAME REPORTED: NORCO 5/325.  DOSE REPORTED: IT. 04-6/R
     Dates: start: 20090728
  8. HYDROCHLOROTHIAZIDE [Concomitant]
     Dates: start: 20090703
  9. DARVOCET [Concomitant]
     Dosage: DRUG NAME: DARVOCET 100
     Dates: start: 20060726
  10. COUMADIN [Concomitant]
     Dosage: DRUG NAME: COUMADIN 5/2.5/2.5/5
     Dates: start: 20080922, end: 20091121

REACTIONS (2)
  - DIVERTICULUM INTESTINAL HAEMORRHAGIC [None]
  - PULMONARY EMBOLISM [None]
